FAERS Safety Report 5726932-X (Version None)
Quarter: 2008Q2

REPORT INFORMATION
  Report Type: 
  Country: None (occurrence: None)
  Receive Date: 20080501
  Receipt Date: 20080116
  Transmission Date: 20081010
  Serious: Yes (Other)
  Sender: FDA-Public Use
  Company Number: PHEH2008US00981

PATIENT

DRUGS (1)
  1. DIOVAN HCT [Suspect]
     Dosage: 160MG VAL/12.5MG HCT

REACTIONS (1)
  - THROMBOCYTOPENIA [None]
